FAERS Safety Report 8312912-7 (Version None)
Quarter: 2012Q2

REPORT INFORMATION
  Report Type: 
  Country: None (occurrence: None)
  Receive Date: 20120424
  Receipt Date: 20120416
  Transmission Date: 20120825
  Serious: Yes (Hospitalization)
  Sender: FDA-Public Use
  Company Number: US-008220

PATIENT
  Age: 54 Year
  Sex: Female

DRUGS (7)
  1. LOVASTATIN [Concomitant]
  2. HYDROCHLOROTHIAZIDE [Concomitant]
  3. TRANEXAMIC ACID [Suspect]
     Indication: MENORRHAGIA
     Dosage: (1300 MG TID)
     Dates: start: 20120401
  4. ASPIRIN [Concomitant]
  5. FOLIC ACID [Concomitant]
  6. CALTRATE WITH VITAMIN D [Concomitant]
  7. NYSTATIN [Concomitant]

REACTIONS (4)
  - BLOOD PRESSURE DIASTOLIC INCREASED [None]
  - HAEMOGLOBIN DECREASED [None]
  - PULMONARY EMBOLISM [None]
  - FIBRIN D DIMER INCREASED [None]
